FAERS Safety Report 22742077 (Version 5)
Quarter: 2024Q1

REPORT INFORMATION
  Report Type: Spontaneous
  Country: US (occurrence: US)
  Receive Date: 20230724
  Receipt Date: 20240112
  Transmission Date: 20240410
  Serious: Yes (Other)
  Sender: FDA-Public Use
  Company Number: US-SA-2023SA205571

PATIENT
  Age: 53 Year
  Sex: Female

DRUGS (5)
  1. TRIAMCINOLONE ACETONIDE [Suspect]
     Active Substance: TRIAMCINOLONE ACETONIDE
     Indication: Vogt-Koyanagi-Harada disease
     Dosage: DOSE DESCRIPTION : 40 MG, QD
  2. TRIAMCINOLONE ACETONIDE [Suspect]
     Active Substance: TRIAMCINOLONE ACETONIDE
     Indication: Uveitis
  3. PREDNISONE [Suspect]
     Active Substance: PREDNISONE
     Indication: Vogt-Koyanagi-Harada disease
     Dosage: DOSE DESCRIPTION : UNK
  4. HUMIRA [Suspect]
     Active Substance: ADALIMUMAB
     Indication: Vogt-Koyanagi-Harada disease
     Dosage: 40 MG SUBCUTANEOUS INJECTION EVERY 2 WEEKS WAS THEN INITIATED AND WAS FOLLOWED BY A PERIOD OF QUIESC
  5. METHOTREXATE [Suspect]
     Active Substance: METHOTREXATE
     Indication: Vogt-Koyanagi-Harada disease

REACTIONS (1)
  - Ocular hypertension [Recovered/Resolved]
